FAERS Safety Report 11515729 (Version 1)
Quarter: 2015Q3

REPORT INFORMATION
  Report Type: Spontaneous
  Country: RU (occurrence: RU)
  Receive Date: 20150916
  Receipt Date: 20150916
  Transmission Date: 20151125
  Serious: Yes (Hospitalization)
  Sender: FDA-Public Use
  Company Number: RU-009507513-1509RUS007640

PATIENT
  Age: 36 Year
  Sex: Female

DRUGS (3)
  1. FOLLITROPIN BETA [Suspect]
     Active Substance: FOLLITROPIN
     Indication: IN VITRO FERTILISATION
  2. INSULIN [Concomitant]
     Active Substance: INSULIN NOS
  3. PREGNYL [Suspect]
     Active Substance: CHORIOGONADOTROPIN ALFA
     Indication: IN VITRO FERTILISATION

REACTIONS (12)
  - Asthenia [Unknown]
  - Haemoglobin decreased [Unknown]
  - Blood iron decreased [Unknown]
  - Insulin resistance [Unknown]
  - Red blood cell sedimentation rate increased [Unknown]
  - Decreased appetite [Unknown]
  - Anaemia [Unknown]
  - Proteinuria [Unknown]
  - Respiratory tract infection viral [Unknown]
  - Pyrexia [Unknown]
  - Ketonuria [Unknown]
  - Blood thyroid stimulating hormone increased [Unknown]
